FAERS Safety Report 8789443 (Version 1)
Quarter: 2012Q4

REPORT INFORMATION
  Report Type: Spontaneous
  Country: US (occurrence: None)
  Receive Date: 20120910
  Receipt Date: 20120910
  Transmission Date: 20130627
  Serious: Yes (Death, Other)
  Sender: FDA-Public Use
  Company Number: None

PATIENT
  Age: 63 Year
  Sex: Male
  Weight: 88.91 kg

DRUGS (1)
  1. RANEXA [Suspect]
     Indication: ANGINA ATTACK
     Route: 048
     Dates: start: 20120814, end: 20120814

REACTIONS (2)
  - Fall [None]
  - Dyspnoea [None]
